FAERS Safety Report 4341802-X (Version None)
Quarter: 2004Q2

REPORT INFORMATION
  Report Type: 
  Country: None (occurrence: None)
  Receive Date: 20040420
  Receipt Date: 20040407
  Transmission Date: 20050107
  Serious: Yes (Other)
  Sender: FDA-Public Use
  Company Number: GB-GLAXOSMITHKLINE-B0329343A

PATIENT

DRUGS (2)
  1. FLOLAN [Suspect]
     Route: 065
  2. NO CONCURRENT MEDICATION [Concomitant]

REACTIONS (2)
  - HEPATOCELLULAR DAMAGE [None]
  - LIVER DISORDER [None]
